FAERS Safety Report 17229346 (Version 1)
Quarter: 2020Q1

REPORT INFORMATION
  Report Type: Spontaneous
  Country: US (occurrence: US)
  Receive Date: 20200102
  Receipt Date: 20200102
  Transmission Date: 20200409
  Serious: Yes (Disabling)
  Sender: FDA-Public Use
  Company Number: None

PATIENT
  Sex: Male

DRUGS (7)
  1. LATUDA [Suspect]
     Active Substance: LURASIDONE HYDROCHLORIDE
     Indication: BIPOLAR II DISORDER
  2. SERTRALINE [Concomitant]
     Active Substance: SERTRALINE HYDROCHLORIDE
  3. LAMOTRIGINE. [Concomitant]
     Active Substance: LAMOTRIGINE
  4. VITAMIN D [Concomitant]
     Active Substance: VITAMIN D NOS
  5. OXYCARBENAZINE [Concomitant]
  6. METHYLPHENIDATE. [Concomitant]
     Active Substance: METHYLPHENIDATE
  7. AUSTEDO [Concomitant]
     Active Substance: DEUTETRABENAZINE

REACTIONS (1)
  - Tardive dyskinesia [None]
